FAERS Safety Report 4660334-2 (Version None)
Quarter: 2005Q2

REPORT INFORMATION
  Report Type: 
  Country: None (occurrence: None)
  Receive Date: 20050505
  Receipt Date: 20050225
  Transmission Date: 20051028
  Serious: No
  Sender: FDA-Public Use
  Company Number: 2005USFACT00351

PATIENT
  Age: 20 Year
  Sex: Female

DRUGS (2)
  1. FACTIVE [Suspect]
     Indication: RESPIRATORY TRACT INFECTION BACTERIAL
     Dosage: QD, ORAL
     Route: 048
     Dates: start: 20050218, end: 20050224
  2. PINDOLOL [Concomitant]

REACTIONS (1)
  - ERYTHEMA MULTIFORME [None]
